FAERS Safety Report 7545807-7 (Version None)
Quarter: 2011Q2

REPORT INFORMATION
  Report Type: 
  Country: None (occurrence: None)
  Receive Date: 20110614
  Receipt Date: 20110608
  Transmission Date: 20111010
  Serious: Yes (Other)
  Sender: FDA-Public Use
  Company Number: PL-SANOFI-AVENTIS-2011SA021396

PATIENT
  Age: 49 Year
  Sex: Female

DRUGS (1)
  1. LEFLUNOMIDE [Suspect]
     Route: 048
     Dates: start: 20050309, end: 20101201

REACTIONS (2)
  - LIVER FUNCTION TEST ABNORMAL [None]
  - TENDON RUPTURE [None]
